FAERS Safety Report 21028577 (Version 1)
Quarter: 2022Q2

REPORT INFORMATION
  Report Type: Report from Study
  Country: US (occurrence: US)
  Receive Date: 20220630
  Receipt Date: 20220630
  Transmission Date: 20220721
  Serious: Yes (Death)
  Sender: FDA-Public Use
  Company Number: US-JNJFOC-20220646948

PATIENT
  Age: 25 Year
  Sex: Female

DRUGS (3)
  1. SPRAVATO [Suspect]
     Active Substance: ESKETAMINE
     Indication: Depression
     Dosage: 56 MG TOTAL 4 DOSES
     Dates: start: 20220404, end: 20220414
  2. SPRAVATO [Suspect]
     Active Substance: ESKETAMINE
     Dosage: 84 MG TOTAL 12 DOSES
     Dates: start: 20220418, end: 20220613
  3. SPRAVATO [Suspect]
     Active Substance: ESKETAMINE
     Dosage: 84 MG TOTAL 1 DOSE
     Dates: start: 20220616, end: 20220616

REACTIONS (1)
  - Death [Fatal]
